FAERS Safety Report 22350135 (Version 1)
Quarter: 2023Q2

REPORT INFORMATION
  Report Type: Spontaneous
  Country: US (occurrence: None)
  Receive Date: 20230522
  Receipt Date: 20230522
  Transmission Date: 20230721
  Serious: No
  Sender: FDA-Public Use
  Company Number: US-Merck Healthcare KGaA-9403698

PATIENT
  Age: 58 Year
  Sex: Female

DRUGS (1)
  1. MAVENCLAD [Suspect]
     Active Substance: CLADRIBINE
     Indication: Multiple sclerosis
     Dosage: CYCLE ONE THERAPY.
     Route: 048

REACTIONS (2)
  - Influenza like illness [Unknown]
  - Nausea [Unknown]

NARRATIVE: CASE EVENT DATE: 20230518
